FAERS Safety Report 20587268 (Version 3)
Quarter: 2022Q3

REPORT INFORMATION
  Report Type: Report from Study
  Country: JP (occurrence: JP)
  Receive Date: 20220314
  Receipt Date: 20220907
  Transmission Date: 20221026
  Serious: Yes (Life-Threatening, Other)
  Sender: FDA-Public Use
  Company Number: JP-BMKK-BMS-2022-011923AA

PATIENT
  Age: 70 Year
  Sex: Male
  Weight: 57.6 kg

DRUGS (7)
  1. YERVOY [Suspect]
     Active Substance: IPILIMUMAB
     Indication: Non-small cell lung cancer recurrent
     Dosage: 50 MG
     Route: 041
     Dates: start: 20210409, end: 20210909
  2. YERVOY [Suspect]
     Active Substance: IPILIMUMAB
  3. OPDIVO [Suspect]
     Active Substance: NIVOLUMAB
     Indication: Non-small cell lung cancer recurrent
     Dosage: UNK
     Route: 041
     Dates: start: 20210409, end: 20210909
  4. CARBOPLATIN [Suspect]
     Active Substance: CARBOPLATIN
     Indication: Non-small cell lung cancer recurrent
     Dosage: UNK
     Route: 065
     Dates: start: 20210409, end: 20210430
  5. PEMETREXED DISODIUM [Suspect]
     Active Substance: PEMETREXED DISODIUM
     Indication: Non-small cell lung cancer recurrent
     Dosage: UNK
     Route: 065
     Dates: start: 20210409, end: 20210430
  6. DEXAMETHASONE [Concomitant]
     Active Substance: DEXAMETHASONE
     Indication: Non-small cell lung cancer recurrent
     Route: 065
     Dates: start: 20210409, end: 20210430
  7. ALOXIF [Concomitant]
     Indication: Non-small cell lung cancer recurrent
     Route: 065
     Dates: start: 20210409, end: 20210430

REACTIONS (2)
  - Myocarditis [Recovering/Resolving]
  - Cardiac tamponade [Recovering/Resolving]

NARRATIVE: CASE EVENT DATE: 20210901
